FAERS Safety Report 10681443 (Version 3)
Quarter: 2015Q1

REPORT INFORMATION
  Report Type: Spontaneous
  Country: JP (occurrence: JP)
  Receive Date: 20141230
  Receipt Date: 20150202
  Transmission Date: 20150720
  Serious: Yes (Disabling, Other)
  Sender: FDA-Public Use
  Company Number: JP-ROCHE-1500771

PATIENT
  Age: 53 Year
  Sex: Female
  Weight: 30 kg

DRUGS (3)
  1. TEMODAL [Concomitant]
     Active Substance: TEMOZOLOMIDE
     Indication: GLIOBLASTOMA
     Dosage: DOSAGE IS UNCERTAIN.
     Route: 048
     Dates: start: 20140615, end: 20140728
  2. TEMODAL [Concomitant]
     Active Substance: TEMOZOLOMIDE
     Dosage: DOSAGE IS UNCERTAIN.?COMPLETED TREATMENT CYCLE NUMBER: 3
     Route: 065
     Dates: start: 20140901
  3. AVASTIN [Suspect]
     Active Substance: BEVACIZUMAB
     Indication: GLIOBLASTOMA
     Dosage: MOST RECENT DOSE PRIOR TO AE ON : 10/NOV/2014
     Route: 041
     Dates: start: 20140818

REACTIONS (2)
  - Cerebral artery stenosis [Unknown]
  - Cerebral infarction [Not Recovered/Not Resolved]

NARRATIVE: CASE EVENT DATE: 20141121
